FAERS Safety Report 7731078-5 (Version None)
Quarter: 2011Q3

REPORT INFORMATION
  Report Type: 
  Country: None (occurrence: None)
  Receive Date: 20110906
  Receipt Date: 20110906
  Transmission Date: 20111222
  Serious: Yes (Life-Threatening, Disabling)
  Sender: FDA-Public Use
  Company Number: None

PATIENT
  Age: 81 Year
  Sex: Female

DRUGS (1)
  1. DABIGATRAN 150MG BID PO [Suspect]
     Dosage: 150MG
     Route: 048

REACTIONS (3)
  - HAEMORRHAGE INTRACRANIAL [None]
  - DRUG SCREEN POSITIVE [None]
  - FALL [None]
